FAERS Safety Report 19203284 (Version 1)
Quarter: 2021Q2

REPORT INFORMATION
  Report Type: Spontaneous
  Country: US (occurrence: US)
  Receive Date: 20210430
  Receipt Date: 20210430
  Transmission Date: 20210717
  Serious: Yes (Other)
  Sender: FDA-Public Use
  Company Number: US-JNJFOC-20210446006

PATIENT
  Sex: Male

DRUGS (1)
  1. RISPERDAL [Suspect]
     Active Substance: RISPERIDONE
     Indication: SCHIZOPHRENIA
     Dosage: (SOMETIMES 40 MG EVERY MORNING AND 80 MG EVERY EVENING)
     Route: 048
     Dates: start: 2007, end: 2010

REACTIONS (48)
  - Brain neoplasm [Unknown]
  - Hyperlipidaemia [Unknown]
  - Neuralgia [Unknown]
  - Rhinitis allergic [Unknown]
  - Tooth loss [Unknown]
  - Dysphagia [Unknown]
  - Anger [Unknown]
  - Headache [Unknown]
  - Aspiration [Unknown]
  - Hepatitis [Unknown]
  - Hypothyroidism [Unknown]
  - Rash [Unknown]
  - Sleep apnoea syndrome [Unknown]
  - Incorrect dose administered [Unknown]
  - Pneumocystis jirovecii pneumonia [Unknown]
  - Dementia [Unknown]
  - Arthritis [Unknown]
  - Urinary tract infection [Unknown]
  - Sexual dysfunction [Unknown]
  - Diabetes mellitus [Unknown]
  - Weight increased [Unknown]
  - Nervous system disorder [Unknown]
  - Dilatation atrial [Unknown]
  - Angiopathy [Unknown]
  - Lip swelling [Unknown]
  - Tremor [Unknown]
  - Vision blurred [Unknown]
  - Hypertension [Unknown]
  - Dilatation ventricular [Unknown]
  - Muscle twitching [Unknown]
  - Tachycardia [Unknown]
  - Nausea [Unknown]
  - Gastrooesophageal reflux disease [Unknown]
  - Salivary duct obstruction [Unknown]
  - Dysphemia [Unknown]
  - Electrocardiogram abnormal [Unknown]
  - Off label use [Unknown]
  - Pneumonia [Unknown]
  - Bruxism [Unknown]
  - Dental caries [Unknown]
  - Eye pain [Unknown]
  - Pituitary tumour benign [Unknown]
  - Chronic obstructive pulmonary disease [Unknown]
  - Musculoskeletal stiffness [Unknown]
  - Swelling face [Unknown]
  - Constipation [Unknown]
  - Dizziness [Unknown]
  - Fatigue [Unknown]
